FAERS Safety Report 5371637-0 (Version None)
Quarter: 2007Q2

REPORT INFORMATION
  Report Type: 
  Country: None (occurrence: None)
  Receive Date: 20070627
  Receipt Date: 20070619
  Transmission Date: 20071010
  Serious: Yes (Hospitalization)
  Sender: FDA-Public Use
  Company Number: PHRM2007FR01691

PATIENT
  Age: 88 Year
  Sex: Female
  Weight: 66 kg

DRUGS (11)
  1. ZELITREX /DEN/ [Suspect]
     Indication: HERPES ZOSTER
     Dosage: 1 G, TID
     Route: 048
     Dates: start: 20070515, end: 20070521
  2. SERESTA [Concomitant]
     Dosage: 50 MG, QD
     Route: 048
  3. ISOPTIN [Concomitant]
     Indication: HYPERTENSION
     Dosage: 240 MG, QD
     Route: 048
  4. LASIX [Concomitant]
     Indication: HYPERTENSION
     Dosage: 60 MG, QD
     Route: 048
  5. IRBESARTAN [Concomitant]
     Indication: HYPERTENSION
     Dosage: 75 MG, QD
     Route: 048
  6. LASIX [Concomitant]
     Dosage: 40 MG, QD
     Route: 048
  7. DIFFU K [Concomitant]
     Dosage: 1 DF, BID
     Route: 048
  8. STRUCTUM [Concomitant]
     Route: 048
  9. ASPIRIN [Concomitant]
     Route: 048
  10. ATARAX [Concomitant]
     Route: 048
  11. TEGRETOL [Suspect]
     Indication: NEURALGIA
     Dosage: 200 MG, BID
     Route: 048
     Dates: start: 20070515, end: 20070519

REACTIONS (11)
  - ASTHENIA [None]
  - BLOOD CHLORIDE DECREASED [None]
  - BLOOD PRESSURE INCREASED [None]
  - BLOOD SODIUM DECREASED [None]
  - BRAIN NATRIURETIC PEPTIDE INCREASED [None]
  - CONSTIPATION [None]
  - DISORIENTATION [None]
  - DRUG INTERACTION [None]
  - HYPERGLYCAEMIA [None]
  - NAUSEA [None]
  - VOMITING [None]
